FAERS Safety Report 8087170-1 (Version None)
Quarter: 2012Q1

REPORT INFORMATION
  Report Type: 
  Country: None (occurrence: None)
  Receive Date: 20120130
  Receipt Date: 20070316
  Transmission Date: 20120608
  Serious: Yes (Other)
  Sender: FDA-Public Use
  Company Number: JP-SANTEN INC.-INC-12-000002

PATIENT
  Sex: Female

DRUGS (2)
  1. LEVOFLOXACIN [Suspect]
     Indication: HORDEOLUM
     Dosage: TWICE DAILY
     Route: 047
     Dates: start: 20070305, end: 20070306
  2. LEVOFLOXACIN [Suspect]
     Indication: CONJUNCTIVITIS

REACTIONS (4)
  - DERMATITIS CONTACT [None]
  - ANAPHYLACTIC REACTION [None]
  - DERMATITIS ATOPIC [None]
  - IMPETIGO [None]
